FAERS Safety Report 6434029-9 (Version None)
Quarter: 2009Q4

REPORT INFORMATION
  Report Type: 
  Country: None (occurrence: None)
  Receive Date: 20091109
  Receipt Date: 20091109
  Transmission Date: 20100525
  Serious: Yes (Other)
  Sender: FDA-Public Use
  Company Number: None

PATIENT
  Age: 86 Year
  Sex: Female
  Weight: 43.5453 kg

DRUGS (2)
  1. AROMASIN [Suspect]
     Indication: BREAST CANCER METASTATIC
     Dosage: ONE DAY MOUTH
     Route: 048
     Dates: start: 20090801, end: 20091018
  2. AROMASIN [Suspect]
     Indication: METASTASES TO BONE
     Dosage: ONE DAY MOUTH
     Route: 048
     Dates: start: 20090801, end: 20091018

REACTIONS (8)
  - ARTHRALGIA [None]
  - BONE PAIN [None]
  - DIZZINESS [None]
  - HEADACHE [None]
  - MYALGIA [None]
  - NEURALGIA [None]
  - PARAESTHESIA [None]
  - VERTIGO [None]
